FAERS Safety Report 6204618-5 (Version None)
Quarter: 2009Q2

REPORT INFORMATION
  Report Type: 
  Country: None (occurrence: None)
  Receive Date: 20090527
  Receipt Date: 20090519
  Transmission Date: 20091009
  Serious: Yes (Hospitalization)
  Sender: FDA-Public Use
  Company Number: US-PFIZER INC-2009210450

PATIENT
  Sex: Male
  Weight: 118.5 kg

DRUGS (38)
  1. NAPROXEN [Suspect]
     Indication: OSTEOARTHRITIS
     Dosage: UNK
     Route: 048
     Dates: start: 20071031
  2. BLINDED *PLACEBO [Suspect]
     Indication: OSTEOARTHRITIS
     Dosage: UNK
     Route: 048
     Dates: start: 20071031
  3. BLINDED CELECOXIB [Suspect]
     Indication: OSTEOARTHRITIS
     Dosage: UNK
     Route: 048
     Dates: start: 20071031
  4. IBUPROFEN [Suspect]
     Indication: OSTEOARTHRITIS
     Dosage: UNK
     Route: 048
     Dates: start: 20071031
  5. NAPROXEN [Suspect]
     Dosage: UNK
     Route: 048
     Dates: start: 20071031
  6. NAPROXEN [Suspect]
     Dosage: UNK
     Route: 048
     Dates: start: 20090107
  7. BLINDED *PLACEBO [Suspect]
     Dosage: UNK
     Route: 048
     Dates: start: 20090107
  8. BLINDED CELECOXIB [Suspect]
     Dosage: UNK
     Route: 048
     Dates: start: 20090107
  9. IBUPROFEN [Suspect]
     Dosage: UNK
     Route: 048
     Dates: start: 20090107
  10. NAPROXEN [Suspect]
     Dosage: UNK
     Route: 048
     Dates: start: 20090107
  11. NEXIUM [Concomitant]
     Indication: PROPHYLAXIS
     Dosage: 20 MG, 1X/DAY
     Route: 048
     Dates: start: 20071031, end: 20081230
  12. NEXIUM [Concomitant]
     Dosage: 20 MG, 1X/DAY
     Route: 048
     Dates: start: 20090107
  13. VICODIN [Concomitant]
     Dosage: UNK
     Route: 048
     Dates: start: 20081230, end: 20090106
  14. DILAUDID [Concomitant]
     Dosage: UNK
     Route: 042
     Dates: start: 20081230, end: 20081231
  15. PERCOCET [Concomitant]
     Dosage: UNK
     Route: 048
     Dates: start: 20081230, end: 20090331
  16. LOVENOX [Concomitant]
     Dosage: UNK
     Route: 058
     Dates: start: 20081231, end: 20090106
  17. LASIX [Concomitant]
     Dosage: UNK
     Route: 042
     Dates: start: 20090101, end: 20090101
  18. OXYCONTIN [Concomitant]
     Dosage: UNK
     Route: 048
     Dates: start: 20081230, end: 20081231
  19. MAGNESIUM CITRATE [Concomitant]
     Dosage: UNK
     Route: 048
     Dates: start: 20090101, end: 20090101
  20. LYRICA [Concomitant]
     Dosage: UNK
     Route: 048
     Dates: start: 20081230, end: 20081230
  21. CEFAZOLIN [Concomitant]
     Dosage: UNK
     Route: 042
     Dates: start: 20081230, end: 20081231
  22. GARLIC [Concomitant]
     Dosage: UNK
     Route: 048
  23. ANAESTHETICS [Concomitant]
     Dosage: UNK
     Route: 008
     Dates: start: 20081230, end: 20081230
  24. HYDROCHLOROTHIAZIDE [Concomitant]
     Dosage: UNK
     Route: 048
     Dates: start: 20050101
  25. ASPIRIN [Concomitant]
     Dosage: UNK
     Route: 048
     Dates: start: 20071006
  26. ASCORBIC ACID [Concomitant]
     Dosage: UNK
     Route: 048
     Dates: start: 20071001
  27. VITAMIN B COMPLEX CAP [Concomitant]
     Dosage: UNK
     Route: 048
     Dates: start: 20071001
  28. BETACAROTENE [Concomitant]
     Dosage: UNK
     Route: 048
     Dates: start: 20071001
  29. CRESTOR [Concomitant]
     Dosage: UNK
     Route: 048
     Dates: start: 20080207
  30. VITAMIN D [Concomitant]
     Dosage: UNK
     Route: 048
     Dates: start: 20081027
  31. FISH OIL [Concomitant]
     Dosage: UNK
     Route: 048
     Dates: start: 20081027
  32. RED BLOOD CELLS, CONCENTRATED [Concomitant]
     Dosage: UNK
     Route: 042
     Dates: start: 20090101, end: 20090101
  33. DOCUSATE SODIUM [Concomitant]
     Dosage: UNK
     Route: 048
     Dates: start: 20081230, end: 20090106
  34. ZETIA [Concomitant]
     Dosage: UNK
     Route: 048
     Dates: start: 20080626
  35. THERAGRAN-M [Concomitant]
     Dosage: UNK
     Route: 048
     Dates: start: 20081230, end: 20090106
  36. PROTONIX [Concomitant]
     Dosage: UNK
     Route: 048
     Dates: start: 20081230, end: 20090106
  37. SENOKOT [Concomitant]
     Dosage: UNK
     Route: 048
     Dates: start: 20081230, end: 20090106
  38. ACETAMINOPHEN [Concomitant]
     Dosage: UNK
     Route: 048
     Dates: start: 20090101, end: 20090103

REACTIONS (1)
  - ATRIAL FIBRILLATION [None]
